FAERS Safety Report 4973018-8 (Version None)
Quarter: 2006Q2

REPORT INFORMATION
  Report Type: 
  Country: None (occurrence: None)
  Receive Date: 20060410
  Receipt Date: 20060330
  Transmission Date: 20061013
  Serious: Yes (Disabling, Other)
  Sender: FDA-Public Use
  Company Number: 2006045033

PATIENT
  Sex: Female

DRUGS (6)
  1. ACCUPRIL [Suspect]
     Indication: ILL-DEFINED DISORDER
  2. SYNTHROID [Concomitant]
  3. NEXIUM [Concomitant]
  4. PLAVIX [Concomitant]
  5. XANAX [Concomitant]
  6. DARVOCET [Concomitant]

REACTIONS (3)
  - ABASIA [None]
  - CORONARY ARTERIAL STENT INSERTION [None]
  - NEUROPATHY [None]
